FAERS Safety Report 8884301 (Version 2)
Quarter: 2012Q4

REPORT INFORMATION
  Report Type: 
  Country: ES (occurrence: ES)
  Receive Date: 20121102
  Receipt Date: 20121228
  Transmission Date: 20130627
  Serious: Yes (Life-Threatening, Hospitalization, Other)
  Sender: FDA-Public Use
  Company Number: ES-ELI_LILLY_AND_COMPANY-ES201210007281

PATIENT
  Age: 85 Year
  Sex: Female
  Weight: 72 kg

DRUGS (6)
  1. FORSTEO [Suspect]
     Indication: OSTEOPOROSIS
     Dosage: 20 ug, qd
     Route: 058
     Dates: start: 20110917
  2. EXELON [Concomitant]
     Indication: DEMENTIA
     Dosage: UNK, qd
     Route: 030
  3. DUOPLAVIN [Concomitant]
     Indication: CARDIAC DISORDER
     Dosage: UNK
     Route: 048
  4. SEGURIL [Concomitant]
     Indication: CARDIAC DISORDER
     Dosage: UNK, qd
     Route: 048
  5. SEGURIL [Concomitant]
     Dosage: 80 mg, qd
  6. ATORVASTATIN [Concomitant]
     Indication: CARDIAC DISORDER
     Dosage: UNK, qd
     Route: 048

REACTIONS (3)
  - Angina pectoris [Recovered/Resolved with Sequelae]
  - Acute myocardial infarction [Recovered/Resolved with Sequelae]
  - Acute myocardial infarction [Recovered/Resolved with Sequelae]
